FAERS Safety Report 12166077 (Version 1)
Quarter: 2016Q1

REPORT INFORMATION
  Report Type: Report from Study
  Country: TW (occurrence: TW)
  Receive Date: 20160309
  Receipt Date: 20160309
  Transmission Date: 20160526
  Serious: Yes (Hospitalization)
  Sender: FDA-Public Use
  Company Number: TW-DEP_13805_2016

PATIENT
  Age: 67 Year
  Sex: Female
  Weight: 65 kg

DRUGS (13)
  1. DIOVAN [Suspect]
     Active Substance: VALSARTAN
     Dosage: BLINDED, INFORMATION WITHHELD
     Dates: start: 20151116
  2. CATAFLAM [Suspect]
     Active Substance: DICLOFENAC POTASSIUM
     Indication: PRODUCT USED FOR UNKNOWN INDICATION
     Dosage: UNK
     Dates: start: 20151107, end: 20151111
  3. LERCANIDIPINE [Concomitant]
     Active Substance: LERCANIDIPINE
     Dosage: DF
     Dates: start: 20140114
  4. CLCZ696D (CODE NOT BROKEN) [Suspect]
     Active Substance: SACUBITRIL
     Indication: CARDIAC FAILURE CHRONIC
     Dosage: BLINDED, INFORMATION WITHHELD
     Dates: start: 20150822, end: 20151106
  5. FUROSEMIDE. [Concomitant]
     Active Substance: FUROSEMIDE
     Dosage: DF
     Dates: start: 20150507
  6. ASPIRIN. [Concomitant]
     Active Substance: ASPIRIN
     Dosage: DF
     Dates: start: 20150528
  7. GLICLAZIDE [Concomitant]
     Active Substance: GLICLAZIDE
     Dosage: DF
     Dates: start: 20140114
  8. ISOSORBIDE DINITRATE. [Concomitant]
     Active Substance: ISOSORBIDE DINITRATE
     Dosage: DF
     Dates: start: 20150528
  9. INSULIN [Concomitant]
     Active Substance: INSULIN NOS
     Dosage: DF
     Dates: start: 20150407
  10. BISOPROLOL [Concomitant]
     Active Substance: BISOPROLOL
     Dosage: DF
     Dates: start: 20140114
  11. ACARBOSE. [Concomitant]
     Active Substance: ACARBOSE
     Dosage: DF
     Dates: start: 20141216
  12. METFORMIN [Concomitant]
     Active Substance: METFORMIN HYDROCHLORIDE
     Dosage: DF
     Dates: start: 20141216
  13. CATAFLAM [Suspect]
     Active Substance: DICLOFENAC POTASSIUM
     Dosage: UNK
     Dates: start: 20151116

REACTIONS (2)
  - Acute kidney injury [Recovered/Resolved]
  - Hypoglycaemia [Recovered/Resolved]

NARRATIVE: CASE EVENT DATE: 20151111
